FAERS Safety Report 11369695 (Version 1)
Quarter: 2015Q3

REPORT INFORMATION
  Report Type: Spontaneous
  Country: US (occurrence: None)
  Receive Date: 20150811
  Receipt Date: 20150811
  Transmission Date: 20151125
  Serious: No
  Sender: FDA-Public Use
  Company Number: None

PATIENT
  Age: 64 Year
  Sex: Female
  Weight: 53.98 kg

DRUGS (1)
  1. ORENCIA [Suspect]
     Active Substance: ABATACEPT
     Indication: RHEUMATOID ARTHRITIS
     Route: 058
     Dates: start: 20150720, end: 20150809

REACTIONS (4)
  - Drug ineffective [None]
  - Trigeminal neuralgia [None]
  - Condition aggravated [None]
  - Malaise [None]

NARRATIVE: CASE EVENT DATE: 20150810
